FAERS Safety Report 5605629-0 (Version None)
Quarter: 2008Q1

REPORT INFORMATION
  Report Type: 
  Country: None (occurrence: None)
  Receive Date: 20080123
  Receipt Date: 20080123
  Transmission Date: 20080703
  Serious: No
  Sender: FDA-Public Use
  Company Number: None

PATIENT
  Age: 63 Year
  Sex: Female
  Weight: 70.3075 kg

DRUGS (1)
  1. ARIMIDEX [Suspect]
     Indication: CHEMOTHERAPY
     Dosage: 1 MG DAILY PO
     Route: 048
     Dates: start: 20070901, end: 20080111

REACTIONS (3)
  - ANXIETY [None]
  - HYPERSENSITIVITY [None]
  - SWOLLEN TONGUE [None]
